FAERS Safety Report 9376512 (Version 1)
Quarter: 2013Q3

REPORT INFORMATION
  Report Type: Spontaneous
  Country: KR (occurrence: KR)
  Receive Date: 20130701
  Receipt Date: 20130701
  Transmission Date: 20140515
  Serious: Yes (Death)
  Sender: FDA-Public Use
  Company Number: KR-JNJFOC-20130616131

PATIENT
  Age: 78 Year
  Sex: Male

DRUGS (7)
  1. FINIBAX [Suspect]
     Indication: PNEUMONIA
     Route: 042
     Dates: start: 20130212, end: 20130226
  2. VANCOMYCIN [Concomitant]
     Route: 065
     Dates: start: 20130210, end: 20130220
  3. CRAVIT [Concomitant]
     Route: 065
     Dates: start: 20130210, end: 20130220
  4. TAMIFLU [Concomitant]
     Route: 065
     Dates: start: 20130210, end: 20130220
  5. UNIPHYL [Concomitant]
     Route: 065
     Dates: start: 20130210, end: 20130308
  6. TULOBUTEROL [Concomitant]
     Route: 065
     Dates: start: 20130211, end: 20130311
  7. ERDOSTEINE [Concomitant]
     Route: 065
     Dates: start: 20130211, end: 20130314

REACTIONS (1)
  - Shock [Fatal]
